FAERS Safety Report 9614416 (Version 3)
Quarter: 2019Q2

REPORT INFORMATION
  Report Type: Report from Study
  Country: JP (occurrence: JP)
  Receive Date: 20131011
  Receipt Date: 20190529
  Transmission Date: 20190711
  Serious: Yes (Other)
  Sender: FDA-Public Use
  Company Number: JP-009507513-1305JPN007518

PATIENT
  Age: 43 Year
  Sex: Female
  Weight: 50 kg

DRUGS (11)
  1. LENDORMIN [Concomitant]
     Active Substance: BROTIZOLAM
     Indication: INSOMNIA
     Dosage: 0.25 MILLIGRAM, QD
     Route: 048
     Dates: start: 20100805, end: 20111214
  2. REBETOL [Concomitant]
     Active Substance: RIBAVIRIN
     Indication: CHRONIC HEPATITIS C
     Dosage: 400MG AT MORNING, 200MG AT NIGHT
     Route: 048
     Dates: start: 20100702, end: 20110224
  3. TALION [Concomitant]
     Indication: DERMATITIS ALLERGIC
     Dosage: 10 MILLIGRAM, QD
     Route: 048
     Dates: start: 20110224, end: 20110728
  4. VITANEURIN [Concomitant]
     Indication: ECZEMA
     Dosage: 25 MILLIGRAM, QD
     Route: 048
     Dates: start: 20110106, end: 20110728
  5. EURAX [Concomitant]
     Active Substance: CROTAMITON
     Indication: DERMATITIS ALLERGIC
     Dosage: UNK
     Route: 061
     Dates: start: 20110127
  6. MYSLEE [Concomitant]
     Active Substance: ZOLPIDEM TARTRATE
     Indication: INSOMNIA
     Dosage: 10 MILLIGRAM, QD
     Route: 048
     Dates: start: 20100805, end: 20110616
  7. REBETOL [Suspect]
     Active Substance: RIBAVIRIN
     Indication: CHRONIC HEPATITIS C
     Dosage: 400MG AT MORNING, 200MG AT NIGHT
     Route: 048
     Dates: start: 20110225, end: 20110521
  8. BIOTIN [Concomitant]
     Active Substance: BIOTIN
     Indication: ECZEMA
     Dosage: DIVIDED ADMINISTRATION FREQUENCY UNKNOWN
     Route: 048
     Dates: start: 20110106, end: 20110728
  9. FERON [Suspect]
     Active Substance: INTERFERON BETA
     Indication: CHRONIC HEPATITIS C
     Dosage: 6 MEGA-INTERNATIONAL UNIT, TIW
     Route: 042
     Dates: start: 20110228, end: 20110521
  10. PEGINTRON [Concomitant]
     Active Substance: PEGINTERFERON ALFA-2B
     Indication: CHRONIC HEPATITIS C
     Dosage: 100 MICROGRAM, QW
     Route: 058
     Dates: start: 20100702, end: 20110224
  11. MEPTIN AIR [Concomitant]
     Active Substance: PROCATEROL HYDROCHLORIDE
     Indication: ASTHMA PROPHYLAXIS
     Dosage: UNK
     Route: 055

REACTIONS (3)
  - Anxiety disorder [Unknown]
  - Decreased appetite [Unknown]
  - Hypoproteinaemia [Recovered/Resolved]

NARRATIVE: CASE EVENT DATE: 20110520
